FAERS Safety Report 11987252 (Version 1)
Quarter: 2016Q1

REPORT INFORMATION
  Report Type: Spontaneous
  Country: US (occurrence: None)
  Receive Date: 20160201
  Receipt Date: 20160201
  Transmission Date: 20160526
  Serious: Yes (Other)
  Sender: FDA-Public Use
  Company Number: None

PATIENT
  Age: 53 Year
  Sex: Female
  Weight: 61.69 kg

DRUGS (1)
  1. SOOLANTRA [Suspect]
     Active Substance: IVERMECTIN
     Indication: ROSACEA
     Dosage: 1X DAILY ONCE DAILY GIVEN INTO/UNDER THE SKIN
     Dates: start: 20160119, end: 20160127

REACTIONS (4)
  - Erythema [None]
  - Condition aggravated [None]
  - Urticaria [None]
  - Rash macular [None]

NARRATIVE: CASE EVENT DATE: 20160127
